FAERS Safety Report 10591797 (Version 1)
Quarter: 2014Q4

REPORT INFORMATION
  Report Type: Report from Study
  Country: ES (occurrence: ES)
  Receive Date: 20141118
  Receipt Date: 20141118
  Transmission Date: 20150529
  Serious: Yes (Other)
  Sender: FDA-Public Use
  Company Number: US-ASTRAZENECA-2014SE87044

PATIENT
  Age: 6 Month
  Sex: Male
  Weight: 7.4 kg

DRUGS (1)
  1. PALIVIZUMAB [Suspect]
     Active Substance: PALIVIZUMAB
     Indication: ANTIVIRAL PROPHYLAXIS
     Route: 030
     Dates: start: 20141021

REACTIONS (3)
  - Bronchiolitis [Not Recovered/Not Resolved]
  - Cough [Not Recovered/Not Resolved]
  - Increased upper airway secretion [Not Recovered/Not Resolved]

NARRATIVE: CASE EVENT DATE: 20141103
